FAERS Safety Report 10160964 (Version 2)
Quarter: 2014Q2

REPORT INFORMATION
  Report Type: Spontaneous
  Country: US (occurrence: US)
  Receive Date: 20140508
  Receipt Date: 20140508
  Transmission Date: 20141212
  Serious: Yes (Hospitalization, Other)
  Sender: FDA-Public Use
  Company Number: US-BAXTER-2014BAX021019

PATIENT
  Sex: Female

DRUGS (6)
  1. DIANEAL LOW CALCIUM [Suspect]
     Indication: PERITONEAL DIALYSIS
     Route: 033
     Dates: start: 201106
  2. DIANEAL LOW CALCIUM [Suspect]
     Route: 033
     Dates: start: 201106
  3. DIANEAL LOW CALCIUM [Suspect]
     Indication: PERITONEAL DIALYSIS
     Route: 033
     Dates: start: 201106
  4. DIANEAL LOW CALCIUM [Suspect]
     Route: 033
     Dates: start: 201106
  5. DIANEAL LOW CALCIUM [Suspect]
     Indication: PERITONEAL DIALYSIS
     Route: 033
     Dates: start: 201106
  6. DIANEAL LOW CALCIUM [Suspect]
     Route: 033
     Dates: start: 201106

REACTIONS (4)
  - Fall [Recovered/Resolved]
  - Foot fracture [Recovered/Resolved]
  - Impaired healing [Unknown]
  - Gangrene [Unknown]
